FAERS Safety Report 6064898-6 (Version None)
Quarter: 2009Q1

REPORT INFORMATION
  Report Type: 
  Country: None (occurrence: None)
  Receive Date: 20090204
  Receipt Date: 20090127
  Transmission Date: 20090719
  Serious: Yes (Other)
  Sender: FDA-Public Use
  Company Number: BR-JNJFOC-20090200203

PATIENT
  Age: 20 Year
  Sex: Female

DRUGS (2)
  1. INVEGA [Suspect]
     Route: 048
  2. INVEGA [Suspect]
     Indication: SCHIZOPHRENIA
     Route: 048

REACTIONS (10)
  - BINGE EATING [None]
  - BREAST TENDERNESS [None]
  - COMPULSIVE SEXUAL BEHAVIOUR [None]
  - EXCESSIVE MASTURBATION [None]
  - GALACTORRHOEA [None]
  - HYPERPROLACTINAEMIA [None]
  - LIBIDO INCREASED [None]
  - MENSTRUAL DISORDER [None]
  - POSTURE ABNORMAL [None]
  - WEIGHT INCREASED [None]
